FAERS Safety Report 9178340 (Version 1)
Quarter: 2012Q4

REPORT INFORMATION
  Report Type: 
  Country: US (occurrence: US)
  Receive Date: 20121029
  Receipt Date: 20121029
  Transmission Date: 20130627
  Serious: No
  Sender: FDA-Public Use
  Company Number: US-009507513-1210USA012287

PATIENT
  Age: 25 Year
  Sex: Male

DRUGS (2)
  1. SAPHRIS [Suspect]
     Indication: SCHIZOPHRENIA
     Dosage: 5 mg, bid
     Route: 060
     Dates: start: 201208
  2. CLOZAPINE [Concomitant]

REACTIONS (1)
  - Drug level increased [Unknown]
